FAERS Safety Report 12842083 (Version 3)
Quarter: 2016Q4

REPORT INFORMATION
  Report Type: Report from Study
  Country: US (occurrence: US)
  Receive Date: 20161013
  Receipt Date: 20161116
  Transmission Date: 20170207
  Serious: Yes (Other)
  Sender: FDA-Public Use
  Company Number: US-VERTEX PHARMACEUTICALS-2016-004823

PATIENT
  Age: 27 Year
  Sex: Female
  Weight: 52 kg

DRUGS (14)
  1. ORKAMBI [Suspect]
     Active Substance: IVACAFTOR\LUMACAFTOR
     Indication: CYSTIC FIBROSIS
     Dosage: 2 DF (400-250 MG), BID
     Route: 048
     Dates: start: 201607, end: 20160829
  2. CAYSTON [Concomitant]
     Active Substance: AZTREONAM
     Dosage: 75 MG, TID
     Route: 055
  3. PULMOZYME [Concomitant]
     Active Substance: DORNASE ALFA
     Dosage: 2.5 ML, QD
     Route: 055
  4. SINGULAIR [Concomitant]
     Active Substance: MONTELUKAST SODIUM
  5. FLONASE [Concomitant]
     Active Substance: FLUTICASONE PROPIONATE
  6. PERTZYE [Concomitant]
     Active Substance: PANCRELIPASE AMYLASE\PANCRELIPASE LIPASE\PANCRELIPASE PROTEASE
     Dosage: 8 CAPS WITH MEALS TID, 4 CAPS WITH SNACKS TID
  7. ALBUTEROL. [Concomitant]
     Active Substance: ALBUTEROL
  8. ADVAIR HFA [Concomitant]
     Active Substance: FLUTICASONE PROPIONATE\SALMETEROL XINAFOATE
     Dosage: 500 MCG, BID
  9. AQUADEKS [Concomitant]
     Active Substance: MINERALS\VITAMINS
  10. CLARITIN [Concomitant]
     Active Substance: LORATADINE
  11. OMEPRAZOLE. [Concomitant]
     Active Substance: OMEPRAZOLE
  12. PREDNISONE. [Concomitant]
     Active Substance: PREDNISONE
  13. HYPERTONIC SALINE SOLUTION [Concomitant]
     Active Substance: SODIUM CHLORIDE
     Dosage: 4 ML, 1 TO 2 TIMES DAILY
     Route: 055
  14. MEPHYTON [Concomitant]
     Active Substance: PHYTONADIONE
     Indication: HAEMOPTYSIS
     Dosage: 5 MG, QD

REACTIONS (12)
  - Nausea [Unknown]
  - Abdominal pain upper [Recovered/Resolved]
  - Steatorrhoea [Recovered/Resolved]
  - Dyspnoea [Recovering/Resolving]
  - Fatigue [Unknown]
  - Respiration abnormal [Not Recovered/Not Resolved]
  - Cough [Unknown]
  - Weight decreased [Recovering/Resolving]
  - Diarrhoea [Recovered/Resolved]
  - Abdominal pain [Recovered/Resolved]
  - Wheezing [Unknown]
  - Haemoptysis [Recovered/Resolved]

NARRATIVE: CASE EVENT DATE: 201607
